FAERS Safety Report 16540943 (Version 2)
Quarter: 2019Q3

REPORT INFORMATION
  Report Type: Spontaneous
  Country: US (occurrence: US)
  Receive Date: 20190708
  Receipt Date: 20190725
  Transmission Date: 20191004
  Serious: No
  Sender: FDA-Public Use
  Company Number: US-BRISTOL-MYERS SQUIBB COMPANY-BMS-2019-064101

PATIENT
  Sex: Female

DRUGS (1)
  1. COUMADIN [Suspect]
     Active Substance: WARFARIN SODIUM
     Indication: ADVERSE EVENT
     Dosage: 5 MILLIGRAM
     Route: 065
     Dates: start: 20190430, end: 20190506

REACTIONS (1)
  - Anticoagulation drug level below therapeutic [Unknown]
